FAERS Safety Report 6853082-1 (Version None)
Quarter: 2010Q3

REPORT INFORMATION
  Report Type: 
  Country: None (occurrence: None)
  Receive Date: 20100717
  Receipt Date: 20071202
  Transmission Date: 20110219
  Serious: No
  Sender: FDA-Public Use
  Company Number: US-PFIZER INC-2007101181

PATIENT
  Sex: Female
  Weight: 74.545 kg

DRUGS (8)
  1. CHANTIX [Suspect]
     Indication: SMOKING CESSATION THERAPY
     Dates: start: 20071118
  2. RISPERDAL [Concomitant]
  3. WELLBUTRIN [Concomitant]
  4. LISINOPRIL [Concomitant]
  5. LOVASTATIN [Concomitant]
  6. EVISTA [Concomitant]
  7. CALCIUM [Concomitant]
  8. CENTRUM [Concomitant]

REACTIONS (1)
  - NAUSEA [None]
